FAERS Safety Report 23814965 (Version 1)
Quarter: 2024Q2

REPORT INFORMATION
  Report Type: Spontaneous
  Country: GB (occurrence: GB)
  Receive Date: 20240503
  Receipt Date: 20240503
  Transmission Date: 20240716
  Serious: Yes (Other)
  Sender: FDA-Public Use
  Company Number: GB-GSKCCFEMEA-Case-01970590_AE-82961

PATIENT

DRUGS (2)
  1. TRELEGY ELLIPTA [Suspect]
     Active Substance: FLUTICASONE FUROATE\UMECLIDINIUM BROMIDE\VILANTEROL TRIFENATATE
     Indication: Product used for unknown indication
     Dosage: 1 PUFF(S), 92/55/22 MCG
  2. FLUTICASONE FUROATE\VILANTEROL TRIFENATATE [Suspect]
     Active Substance: FLUTICASONE FUROATE\VILANTEROL TRIFENATATE
     Indication: Product used for unknown indication
     Dosage: UNK, 184/22

REACTIONS (5)
  - Oesophageal food impaction [Recovering/Resolving]
  - Dry throat [Recovering/Resolving]
  - Throat irritation [Recovering/Resolving]
  - Pharyngeal swelling [Recovering/Resolving]
  - Product complaint [Recovering/Resolving]
